FAERS Safety Report 8408728-3 (Version None)
Quarter: 2012Q2

REPORT INFORMATION
  Report Type: 
  Country: None (occurrence: None)
  Receive Date: 20120604
  Receipt Date: 20120530
  Transmission Date: 20120825
  Serious: Yes (Death)
  Sender: FDA-Public Use
  Company Number: US-CELGENEUS-163-21880-12031329

PATIENT
  Sex: Female

DRUGS (5)
  1. REVLIMID [Suspect]
     Dosage: 6.4286 MILLIGRAM
     Route: 048
     Dates: start: 20100801, end: 20110420
  2. REVLIMID [Suspect]
     Dosage: 25-10-15MG
     Route: 048
     Dates: start: 20080101, end: 20100101
  3. REVLIMID [Suspect]
     Dosage: 14.2857 MILLIGRAM
     Route: 048
     Dates: start: 20110401, end: 20120305
  4. REVLIMID [Suspect]
     Indication: MULTIPLE MYELOMA
     Dosage: 15 MILLIGRAM
     Route: 048
     Dates: start: 20060901, end: 20060101
  5. REVLIMID [Suspect]
     Dosage: 25 MILLIGRAM
     Route: 048
     Dates: start: 20061001, end: 20070101

REACTIONS (5)
  - CARDIAC DISORDER [None]
  - ASTHENIA [None]
  - FAILURE TO THRIVE [None]
  - THROMBOCYTOPENIA [None]
  - MALAISE [None]
